FAERS Safety Report 10103524 (Version 1)
Quarter: 2014Q2

REPORT INFORMATION
  Report Type: Report from Study
  Country: US (occurrence: US)
  Receive Date: 20140424
  Receipt Date: 20140424
  Transmission Date: 20141212
  Serious: Yes (Hospitalization)
  Sender: FDA-Public Use
  Company Number: US-SA-2014SA051932

PATIENT
  Age: 57 Year
  Sex: Male
  Weight: 76.2 kg

DRUGS (10)
  1. SARGRAMOSTIM [Suspect]
     Indication: MALIGNANT MELANOMA
     Dosage: ON D1-D14, Q21D
     Route: 058
     Dates: start: 20140204, end: 20140415
  2. SARGRAMOSTIM [Suspect]
     Indication: MALIGNANT MELANOMA
     Dosage: AT 21 DAY INTERVAL, 4 CYCLES
     Route: 065
  3. IPILIMUMAB [Suspect]
     Indication: MALIGNANT MELANOMA
     Route: 042
     Dates: start: 20140204, end: 20140408
  4. IPILIMUMAB [Suspect]
     Indication: MALIGNANT MELANOMA
     Dosage: AT 21 DAY INTERVAL, 4 CYCLES
     Route: 065
  5. AVODART [Concomitant]
  6. ALFUZOSIN [Concomitant]
  7. VITAMIN D [Concomitant]
  8. CRESTOR [Concomitant]
  9. FERROUS SULFATE [Concomitant]
  10. ROZEREM [Concomitant]

REACTIONS (1)
  - Petit mal epilepsy [Unknown]
